FAERS Safety Report 18284941 (Version 2)
Quarter: 2020Q4

REPORT INFORMATION
  Report Type: Spontaneous
  Country: US (occurrence: US)
  Receive Date: 20200918
  Receipt Date: 20201026
  Transmission Date: 20210113
  Serious: Yes (Other)
  Sender: FDA-Public Use
  Company Number: US-BAUSCH-BL-2020-026127

PATIENT
  Age: 88 Year
  Sex: Female

DRUGS (3)
  1. DESMOPRESSIN ACETATE NASAL SOLUTION 0.01% [Suspect]
     Active Substance: DESMOPRESSIN ACETATE
     Indication: DIABETES INSIPIDUS
     Dosage: 1 SPRAY IN EACH NOSTRIL TWICE DAILY
     Route: 045
     Dates: start: 2020, end: 202009
  2. DESMOPRESSIN ACETATE. [Concomitant]
     Active Substance: DESMOPRESSIN ACETATE
     Indication: PRODUCT USED FOR UNKNOWN INDICATION
     Dosage: NASAL SOLUTION; HAD BEEN USING FOR MANY YEARS?(FROM OTHER COMPANIES)
     Route: 065
  3. DESMOPRESSIN ACETATE NASAL SOLUTION 0.01% [Suspect]
     Active Substance: DESMOPRESSIN ACETATE
     Dosage: 1 SPRAY IN EACH NOSTRIL TWICE DAILY?NEW BOTTLE
     Route: 045
     Dates: start: 202009

REACTIONS (6)
  - Extra dose administered [Unknown]
  - Product quality issue [Unknown]
  - Limb injury [Unknown]
  - Joint swelling [Recovering/Resolving]
  - Staphylococcal infection [Unknown]
  - Product container issue [Unknown]

NARRATIVE: CASE EVENT DATE: 2020
